FAERS Safety Report 6442547-2 (Version None)
Quarter: 2009Q4

REPORT INFORMATION
  Report Type: 
  Country: None (occurrence: None)
  Receive Date: 20091112
  Receipt Date: 20091029
  Transmission Date: 20100525
  Serious: Yes (Life-Threatening)
  Sender: FDA-Public Use
  Company Number: MSTR-NO-0911S-0203

PATIENT
  Age: 50 Year
  Sex: Male
  Weight: 66.5 kg

DRUGS (1)
  1. METASTRON [Suspect]
     Indication: METASTATIC PAIN
     Dosage: 3.5 ML, SINGLE DOSE, IV
     Route: 042
     Dates: start: 20090811, end: 20090811

REACTIONS (4)
  - DECREASED APPETITE [None]
  - MALIGNANT NEOPLASM PROGRESSION [None]
  - NASOPHARYNGEAL CANCER [None]
  - NAUSEA [None]
